FAERS Safety Report 9448899 (Version 1)
Quarter: 2013Q3

REPORT INFORMATION
  Report Type: Spontaneous
  Country: GB (occurrence: GB)
  Receive Date: 20130808
  Receipt Date: 20130808
  Transmission Date: 20140515
  Serious: Yes (Other)
  Sender: FDA-Public Use
  Company Number: GB-BRISTOL-MYERS SQUIBB COMPANY-19176742

PATIENT
  Sex: Female

DRUGS (1)
  1. HYDREA [Suspect]

REACTIONS (1)
  - Hysterectomy [Unknown]
